FAERS Safety Report 13362359 (Version 1)
Quarter: 2017Q1

REPORT INFORMATION
  Report Type: Spontaneous
  Country: US (occurrence: US)
  Receive Date: 20170322
  Receipt Date: 20170322
  Transmission Date: 20170429
  Serious: Yes (Disabling)
  Sender: FDA-Public Use
  Company Number: None

PATIENT
  Age: 32 Year
  Sex: Female
  Weight: 81 kg

DRUGS (1)
  1. REMERON [Suspect]
     Active Substance: MIRTAZAPINE
     Indication: PERINATAL DEPRESSION
     Dosage: ?          QUANTITY:1 TABLET(S); ?AT BEDTIME ORAL?
     Route: 048

REACTIONS (8)
  - Tinnitus [None]
  - Fatigue [None]
  - Vision blurred [None]
  - Restless legs syndrome [None]
  - Deafness unilateral [None]
  - Weight increased [None]
  - Depression [None]
  - Dizziness [None]

NARRATIVE: CASE EVENT DATE: 20150907
